FAERS Safety Report 9934975 (Version 2)
Quarter: 2014Q1

REPORT INFORMATION
  Report Type: Spontaneous
  Country: DE (occurrence: DE)
  Receive Date: 20140228
  Receipt Date: 20140228
  Transmission Date: 20141002
  Serious: Yes (Other)
  Sender: FDA-Public Use
  Company Number: DE-CELGENEUS-062-21660-13124227

PATIENT
  Age: 37 Year
  Sex: Female

DRUGS (1)
  1. ABRAXANE [Suspect]
     Indication: BREAST CANCER
     Dosage: 28.5714 MILLIGRAM
     Route: 041

REACTIONS (1)
  - Drug intolerance [Recovered/Resolved]
